FAERS Safety Report 4907910-7 (Version None)
Quarter: 2006Q1

REPORT INFORMATION
  Report Type: 
  Country: None (occurrence: None)
  Receive Date: 20060210
  Receipt Date: 20050523
  Transmission Date: 20060701
  Serious: No
  Sender: FDA-Public Use
  Company Number: US-BRISTOL-MYERS SQUIBB COMPANY-12978417

PATIENT
  Age: 85 Year
  Sex: Female
  Weight: 73 kg

DRUGS (2)
  1. ULTRAVATE [Suspect]
     Indication: RASH
     Dates: start: 20050101, end: 20050521
  2. ULTRAVATE [Suspect]
     Indication: OEDEMA
     Dates: start: 20050101, end: 20050521

REACTIONS (4)
  - APPLICATION SITE PAIN [None]
  - APPLICATION SITE WARMTH [None]
  - PARAESTHESIA [None]
  - SKIN DISCOLOURATION [None]
